FAERS Safety Report 18261384 (Version 1)
Quarter: 2020Q3

REPORT INFORMATION
  Report Type: Spontaneous
  Country: SE (occurrence: SE)
  Receive Date: 20200914
  Receipt Date: 20200914
  Transmission Date: 20201103
  Serious: Yes (Other)
  Sender: FDA-Public Use
  Company Number: SE-GILEAD-2020-0494305

PATIENT
  Age: 78 Year
  Sex: Male

DRUGS (6)
  1. ATORVASTATIN [Concomitant]
     Active Substance: ATORVASTATIN
     Dates: start: 20190313
  2. EPCLUSA [Suspect]
     Active Substance: SOFOSBUVIR\VELPATASVIR
     Indication: HEPATITIS C
     Dosage: 1 DOSAGE FORM, QD
     Route: 048
     Dates: start: 20200529, end: 20200824
  3. BARACLUDE [Concomitant]
     Active Substance: ENTECAVIR
     Dates: start: 20190125
  4. OXYCODONE [Concomitant]
     Active Substance: OXYCODONE
     Dates: start: 20200217
  5. LOSARTAN. [Concomitant]
     Active Substance: LOSARTAN
     Dates: start: 20190121
  6. ANTABUS [Concomitant]
     Active Substance: DISULFIRAM
     Dosage: VID BEHOV
     Dates: start: 20190827

REACTIONS (1)
  - Device physical property issue [Not Recovered/Not Resolved]

NARRATIVE: CASE EVENT DATE: 20200814
